FAERS Safety Report 7054358-8 (Version None)
Quarter: 2010Q4

REPORT INFORMATION
  Report Type: 
  Country: None (occurrence: None)
  Receive Date: 20101015
  Receipt Date: 20100930
  Transmission Date: 20110411
  Serious: Yes (Hospitalization)
  Sender: FDA-Public Use
  Company Number: 1000016612

PATIENT
  Age: 23 Year
  Sex: Female

DRUGS (4)
  1. ESCITALOPRAM [Suspect]
     Dosage: 1 DOSAGE FORM (1 DOSAGE FORMS,1 IN 1  D),ORAL
     Route: 048
     Dates: end: 20100417
  2. LEVONORGESTREL AND ETHINYL ESTRADIOL [Suspect]
     Dosage: 1 DOSAGE FORMS (1 DOSAGE FORMS,1 IN 1 D),ORAL
     Route: 048
     Dates: start: 20091201, end: 20100417
  3. GREEN TEA (CAMELLIA SINENSIS) [Suspect]
     Dosage: 4 DOSAGE FORM (4 DOSAGE FORMS,1 IN 1 D),ORAL
     Route: 048
     Dates: start: 20100310, end: 20100416
  4. ZOPICLONE (ZOPICLONE) [Concomitant]

REACTIONS (2)
  - CHOLESTASIS [None]
  - CYTOLYTIC HEPATITIS [None]
